FAERS Safety Report 10465740 (Version 1)
Quarter: 2014Q3

REPORT INFORMATION
  Report Type: Report from Study
  Country: BR (occurrence: BR)
  Receive Date: 20140919
  Receipt Date: 20140919
  Transmission Date: 20150326
  Serious: Yes (Other)
  Sender: FDA-Public Use
  Company Number: BR-BAXTER-2014BAX054870

PATIENT
  Sex: Male

DRUGS (13)
  1. CLORETO DE S?DIO - BAXTER [Suspect]
     Active Substance: SODIUM CHLORIDE
     Indication: GENERAL ANAESTHESIA
     Dosage: 0.5 ML/KG
     Route: 065
  2. MIDAZOLAM [Suspect]
     Active Substance: MIDAZOLAM\MIDAZOLAM HYDROCHLORIDE
     Indication: PREMEDICATION
     Route: 042
  3. ATROPINE [Suspect]
     Active Substance: ATROPINE
     Indication: HYPOTONIA
     Route: 042
  4. ATRACURIUM [Suspect]
     Active Substance: ATRACURIUM
     Indication: ANAESTHESIA
     Route: 065
  5. NEOSTIGMINE [Suspect]
     Active Substance: NEOSTIGMINE
     Indication: MUSCLE RELAXANT THERAPY
     Route: 042
  6. ISOTHANE [Suspect]
     Active Substance: ISOFLURANE
     Indication: GENERAL ANAESTHESIA
     Route: 065
  7. CLORETO DE S?DIO - BAXTER [Suspect]
     Active Substance: SODIUM CHLORIDE
     Route: 065
  8. LIDOCAINE. [Suspect]
     Active Substance: LIDOCAINE
     Indication: ANAESTHESIA
     Route: 065
  9. ATRACURIUM [Suspect]
     Active Substance: ATRACURIUM
     Dosage: REPEATED EVERY 30 MINUTES UNTIL 30 MINUTES BEFORE THE END OF THE PROCEDURE
     Route: 042
  10. NITROUS OXIDE. [Concomitant]
     Active Substance: NITROUS OXIDE
     Indication: ANAESTHESIA
     Route: 055
  11. ATROPINE [Suspect]
     Active Substance: ATROPINE
     Indication: PREMEDICATION
     Route: 042
  12. ETOMIDATE. [Suspect]
     Active Substance: ETOMIDATE
     Indication: ANAESTHESIA
     Dosage: 0.3-0.4 MG/KG
     Route: 042
  13. OXYGEN. [Concomitant]
     Active Substance: OXYGEN
     Indication: ANAESTHESIA
     Dosage: AT 3 L
     Route: 055

REACTIONS (1)
  - Heart rate decreased [Unknown]
